FAERS Safety Report 25363405 (Version 1)
Quarter: 2025Q2

REPORT INFORMATION
  Report Type: Spontaneous
  Country: BR (occurrence: BR)
  Receive Date: 20250527
  Receipt Date: 20250527
  Transmission Date: 20250716
  Serious: Yes (Other)
  Sender: BAYER HEALTHCARE PHARMACEUTICALS INC.
  Company Number: BR-BAYER-2025A068827

PATIENT
  Age: 46 Year
  Sex: Male

DRUGS (1)
  1. ULTRAVIST [Suspect]
     Active Substance: IOPROMIDE
     Indication: Computerised tomogram abdomen
     Route: 042
     Dates: start: 20250506, end: 20250506

REACTIONS (5)
  - Hypoxia [Recovered/Resolved]
  - Nausea [Recovered/Resolved]
  - Eye oedema [Recovered/Resolved]
  - Vomiting [Recovered/Resolved]
  - Nasal congestion [Recovered/Resolved]

NARRATIVE: CASE EVENT DATE: 20250506
